FAERS Safety Report 19699829 (Version 1)
Quarter: 2021Q3

REPORT INFORMATION
  Report Type: Spontaneous
  Country: CN (occurrence: CN)
  Receive Date: 20210813
  Receipt Date: 20210813
  Transmission Date: 20211014
  Serious: Yes (Life-Threatening, Other)
  Sender: FDA-Public Use
  Company Number: CN-ASTRAZENECA-2021A678386

PATIENT
  Sex: Female

DRUGS (1)
  1. TAGRISSO [Suspect]
     Active Substance: OSIMERTINIB
     Dosage: TOOK ABOUT TWENTY TABLETS OF TAGRISSO ORALLY AT ONE TIME
     Route: 048

REACTIONS (5)
  - Fall [Unknown]
  - Intentional overdose [Unknown]
  - Fracture [Unknown]
  - Suicide attempt [Unknown]
  - Diarrhoea [Unknown]

NARRATIVE: CASE EVENT DATE: 20210810
